FAERS Safety Report 5338442-2 (Version None)
Quarter: 2007Q2

REPORT INFORMATION
  Report Type: 
  Country: None (occurrence: None)
  Receive Date: 20070405
  Receipt Date: 20061205
  Transmission Date: 20071010
  Serious: No
  Sender: FDA-Public Use
  Company Number: US200611001674

PATIENT
  Age: 55 Year
  Sex: Female
  Weight: 47.2 kg

DRUGS (10)
  1. CYMBALTA [Suspect]
     Indication: DEPRESSION
     Dosage: SEE IMAGE
     Route: 048
     Dates: start: 20060101, end: 20060101
  2. CYMBALTA [Suspect]
     Indication: DEPRESSION
     Dosage: SEE IMAGE
     Route: 048
     Dates: start: 20061022, end: 20060101
  3. CYMBALTA [Suspect]
     Indication: DEPRESSION
     Dosage: SEE IMAGE
     Route: 048
     Dates: start: 20060101
  4. SYNTHROID [Concomitant]
  5. CYTOMEL [Concomitant]
  6. FEMHRT [Concomitant]
  7. AMBIEN [Concomitant]
  8. OMEGA-3 (OMEGA-3 TRIGLYCERIDES) [Concomitant]
  9. FLAXSEED OIL (LINSEED OIL) [Concomitant]
  10. VITAMINS NOS (VITAMINS NOS) [Concomitant]

REACTIONS (7)
  - CONSTIPATION [None]
  - DRUG EFFECT INCREASED [None]
  - DRY MOUTH [None]
  - FATIGUE [None]
  - INSOMNIA [None]
  - PARAESTHESIA [None]
  - TREMOR [None]
